FAERS Safety Report 4836544-8 (Version None)
Quarter: 2005Q4

REPORT INFORMATION
  Report Type: 
  Country: None (occurrence: None)
  Receive Date: 20051118
  Receipt Date: 20051108
  Transmission Date: 20060501
  Serious: Yes (Hospitalization, Other)
  Sender: FDA-Public Use
  Company Number: HQWYE460609NOV05

PATIENT

DRUGS (1)
  1. ADVIL [Suspect]
     Dosage: (HIGH DOSE)
     Route: 048

REACTIONS (4)
  - EXTRADURAL HAEMATOMA [None]
  - POST PROCEDURAL COMPLICATION [None]
  - SELF-MEDICATION [None]
  - SPINAL CORD COMPRESSION [None]
